FAERS Safety Report 8279257-5 (Version None)
Quarter: 2012Q2

REPORT INFORMATION
  Report Type: 
  Country: None (occurrence: None)
  Receive Date: 20120412
  Receipt Date: 20110509
  Transmission Date: 20120825
  Serious: No
  Sender: FDA-Public Use
  Company Number: US-ASTRAZENECA-2010SE60930

PATIENT
  Age: 37 Year
  Sex: Female

DRUGS (1)
  1. NEXIUM [Suspect]
     Route: 048

REACTIONS (8)
  - INGROWING NAIL [None]
  - ABDOMINAL DISCOMFORT [None]
  - NASOPHARYNGITIS [None]
  - PNEUMONIA [None]
  - BRONCHITIS [None]
  - FOOT OPERATION [None]
  - MALAISE [None]
  - DRUG DOSE OMISSION [None]
